FAERS Safety Report 9689008 (Version 2)
Quarter: 2013Q4

REPORT INFORMATION
  Report Type: Spontaneous
  Country: BR (occurrence: BR)
  Receive Date: 20131114
  Receipt Date: 20131209
  Transmission Date: 20140711
  Serious: Yes (Other)
  Sender: FDA-Public Use
  Company Number: BR-PFIZER INC-2013322148

PATIENT
  Age: 86 Year
  Sex: Female
  Weight: 82 kg

DRUGS (10)
  1. LYRICA [Suspect]
     Indication: PAIN
     Dosage: 2 CAPSULES (150 MG), DAILY
     Route: 048
     Dates: start: 20120718, end: 201208
  2. LYRICA [Suspect]
     Indication: OSTEOARTHRITIS
  3. AAS [Concomitant]
     Indication: BLOOD DISORDER
     Dosage: 1 UNIT (UNSPECIFIED DOSE), 1X/DAY (AT LUNCH)
  4. CAPTOPRIL [Concomitant]
     Indication: BLOOD PRESSURE INCREASED
     Dosage: 1 UNIT (25MG), 3X/DAY
  5. CENTRUM SILVER [Concomitant]
     Indication: VITAMIN SUPPLEMENTATION
     Dosage: 1 UNIT (UNSPECIFIED DOSE), DAILY
  6. DEPURA [Concomitant]
     Dosage: 4 DROPS (UNSPECIFIED DOSE), DAILY
  7. OSCAL 500-D [Concomitant]
     Indication: BONE DISORDER
     Dosage: 1 UNIT (UNSPECIFIED DOSE), DAILY
     Dates: start: 2003
  8. SINVALIP [Concomitant]
     Indication: BLOOD CHOLESTEROL
     Dosage: 1 UNIT (10 MG), DAILY
     Dates: start: 2008
  9. LIMITROL [Concomitant]
     Indication: URINARY TRACT DISORDER
  10. LIMITROL [Concomitant]
     Indication: RELAXATION THERAPY

REACTIONS (6)
  - Off label use [Unknown]
  - Dementia Alzheimer^s type [Unknown]
  - Dizziness [Unknown]
  - Visual impairment [Unknown]
  - Fatigue [Unknown]
  - Apathy [Unknown]
